FAERS Safety Report 19434165 (Version 1)
Quarter: 2021Q2

REPORT INFORMATION
  Report Type: Spontaneous
  Country: US (occurrence: US)
  Receive Date: 20210617
  Receipt Date: 20210617
  Transmission Date: 20210717
  Serious: No
  Sender: FDA-Public Use
  Company Number: US-ROCHE-2589286

PATIENT
  Sex: Female
  Weight: 55.39 kg

DRUGS (2)
  1. ACTEMRA [Suspect]
     Active Substance: TOCILIZUMAB
     Route: 058
  2. ACTEMRA [Suspect]
     Active Substance: TOCILIZUMAB
     Indication: JUVENILE IDIOPATHIC ARTHRITIS
     Dosage: INJECT ONE SYRINGE
     Route: 058
     Dates: start: 20200228

REACTIONS (2)
  - No adverse event [Unknown]
  - Pregnancy [Unknown]
